FAERS Safety Report 6485392-4 (Version None)
Quarter: 2009Q4

REPORT INFORMATION
  Report Type: 
  Country: None (occurrence: None)
  Receive Date: 20091204
  Receipt Date: 20091118
  Transmission Date: 20100525
  Serious: Yes (Other)
  Sender: FDA-Public Use
  Company Number: DSA_42044_2009

PATIENT
  Age: 11 Year
  Sex: Male

DRUGS (5)
  1. ENALAPRIL MALEATE [Suspect]
     Indication: HYPERTENSION
     Dosage: (2.5 MG QD ORAL)
     Route: 048
     Dates: start: 20070101
  2. LOSARTAN POTASSIUM [Suspect]
     Indication: HYPERTENSION
     Dosage: (25 MG QD ORAL)
     Route: 048
     Dates: start: 19980101
  3. CALCIFEDIOL (CALCIFEDIOL) [Suspect]
     Indication: DRUG USE FOR UNKNOWN INDICATION
     Dosage: (5 DROPS DAILY)
     Dates: start: 19980101
  4. AZITHROMYCIN [Concomitant]
  5. CALCIUM CARBONATE [Concomitant]

REACTIONS (1)
  - INTRACRANIAL PRESSURE INCREASED [None]
